FAERS Safety Report 16025935 (Version 1)
Quarter: 2019Q1

REPORT INFORMATION
  Report Type: Report from Study
  Country: IT (occurrence: IT)
  Receive Date: 20190302
  Receipt Date: 20190302
  Transmission Date: 20190418
  Serious: Yes (Other)
  Sender: FDA-Public Use
  Company Number: IT-ACCORD-110294

PATIENT
  Age: 16 Year
  Sex: Female

DRUGS (2)
  1. RESILIENT [Suspect]
     Active Substance: LITHIUM SULFATE
     Dosage: STRENGTH:83 MG
     Route: 048
     Dates: start: 20180716, end: 20180716
  2. QUETIAPINE. [Suspect]
     Active Substance: QUETIAPINE
     Route: 048
     Dates: start: 20180716, end: 20180716

REACTIONS (3)
  - Antipsychotic drug level increased [Recovered/Resolved]
  - Hypotension [Recovered/Resolved]
  - Drug abuse [Unknown]

NARRATIVE: CASE EVENT DATE: 20180716
